FAERS Safety Report 20994378 (Version 1)
Quarter: 2022Q2

REPORT INFORMATION
  Report Type: Spontaneous
  Country: BR (occurrence: BR)
  Receive Date: 20220622
  Receipt Date: 20220622
  Transmission Date: 20220720
  Serious: Yes (Death, Other)
  Sender: FDA-Public Use
  Company Number: BR-STRIDES ARCOLAB LIMITED-2022SP007507

PATIENT
  Age: 65 Year
  Sex: Male

DRUGS (5)
  1. PREDNISOLONE [Suspect]
     Active Substance: PREDNISOLONE
     Indication: Cutaneous T-cell lymphoma stage II
     Dosage: UNK UNK, CYCLICAL, CHOP REGIMEN
     Route: 065
  2. METHOTREXATE [Suspect]
     Active Substance: METHOTREXATE
     Indication: Cutaneous T-cell lymphoma stage II
     Dosage: UNK
     Route: 048
     Dates: start: 202105
  3. DOXORUBICIN [Suspect]
     Active Substance: DOXORUBICIN
     Indication: Cutaneous T-cell lymphoma stage II
     Dosage: UNK UNK, CYCLICAL, CHOP REGIMEN
     Route: 065
  4. VINCRISTINE [Suspect]
     Active Substance: VINCRISTINE
     Indication: Cutaneous T-cell lymphoma stage II
     Dosage: UNK UNK, CYCLICAL
     Route: 065
  5. CYCLOPHOSPHAMIDE [Suspect]
     Active Substance: CYCLOPHOSPHAMIDE
     Indication: Cutaneous T-cell lymphoma stage II
     Dosage: UNK UNK, CYCLICAL, CHOP REGIMEN
     Route: 065

REACTIONS (2)
  - Sepsis [Fatal]
  - Drug ineffective [Unknown]

NARRATIVE: CASE EVENT DATE: 20210601
